FAERS Safety Report 5898655-8 (Version None)
Quarter: 2008Q3

REPORT INFORMATION
  Report Type: 
  Country: None (occurrence: None)
  Receive Date: 20080925
  Receipt Date: 20080319
  Transmission Date: 20090109
  Serious: No
  Sender: FDA-Public Use
  Company Number: A0716412A

PATIENT
  Age: 49 Year
  Sex: Female

DRUGS (1)
  1. WELLBUTRIN XL [Suspect]
     Indication: DEPRESSION
     Dosage: 150MG PER DAY
     Route: 048
     Dates: start: 20080309, end: 20080314

REACTIONS (7)
  - EYELID OEDEMA [None]
  - FEELING HOT [None]
  - HYPERSENSITIVITY [None]
  - PAIN IN EXTREMITY [None]
  - PRURITUS [None]
  - RASH [None]
  - RASH MACULAR [None]
